FAERS Safety Report 18961713 (Version 4)
Quarter: 2021Q2

REPORT INFORMATION
  Report Type: Report from Study
  Country: JP (occurrence: JP)
  Receive Date: 20210303
  Receipt Date: 20210407
  Transmission Date: 20210717
  Serious: Yes (Other)
  Sender: FDA-Public Use
  Company Number: JP-JNJFOC-20200947362

PATIENT
  Age: 69 Year
  Sex: Male
  Weight: 67 kg

DRUGS (4)
  1. RANMARK [Concomitant]
     Active Substance: DENOSUMAB
     Dosage: DOSE UNKNOWN
     Route: 065
     Dates: start: 20200716
  2. ZYTIGA [Suspect]
     Active Substance: ABIRATERONE ACETATE
     Indication: PROSTATE CANCER
     Route: 048
     Dates: start: 20200716, end: 20200917
  3. ERLEADA [Suspect]
     Active Substance: APALUTAMIDE
     Indication: PROSTATE CANCER
     Route: 048
     Dates: start: 20201112, end: 20210107
  4. GONAX [Concomitant]
     Active Substance: DEGARELIX
     Dosage: DOSE UNKNOWN
     Route: 065
     Dates: start: 20200618

REACTIONS (2)
  - Rash [Recovered/Resolved]
  - Hepatic function abnormal [Recovered/Resolved]

NARRATIVE: CASE EVENT DATE: 20200917
